FAERS Safety Report 24636987 (Version 1)
Quarter: 2024Q4

REPORT INFORMATION
  Report Type: Spontaneous
  Country: US (occurrence: None)
  Receive Date: 20241118
  Receipt Date: 20241118
  Transmission Date: 20250114
  Serious: Yes (Disabling)
  Sender: Public
  Company Number: None

PATIENT
  Age: 35 Year
  Sex: Male
  Weight: 100.8 kg

DRUGS (1)
  1. OCREVUS [Suspect]
     Active Substance: OCRELIZUMAB
     Dosage: OTHER FREQUENCY : 1 DOSE EVERY 6 MON;?
     Route: 042
     Dates: start: 20240912, end: 20240926

REACTIONS (5)
  - Hiccups [None]
  - Muscle twitching [None]
  - Restless legs syndrome [None]
  - Gait disturbance [None]
  - Sensory disturbance [None]

NARRATIVE: CASE EVENT DATE: 20240915
